FAERS Safety Report 5475117-3 (Version None)
Quarter: 2007Q4

REPORT INFORMATION
  Report Type: 
  Country: None (occurrence: None)
  Receive Date: 20071002
  Receipt Date: 20070920
  Transmission Date: 20080405
  Serious: No
  Sender: FDA-Public Use
  Company Number: US-BOEHRINGER INGELHEIM PHARMACEUTICALS, INC.-2007-BP-18841BP

PATIENT
  Sex: Male
  Weight: 110 kg

DRUGS (8)
  1. CATAPRES-TTS-1 [Suspect]
     Indication: HYPERTENSION
     Route: 061
     Dates: start: 20070401, end: 20070709
  2. TOPROL-XL [Concomitant]
     Dates: start: 20070403
  3. FELODIPINE ER [Concomitant]
  4. CLONIDINE [Concomitant]
  5. AGGRENOX [Concomitant]
     Dates: start: 20070418
  6. SIMVASTATIN [Concomitant]
     Dates: start: 20070418
  7. PLENDIL [Concomitant]
     Dates: start: 20061221
  8. DYAZIDE [Concomitant]
     Dates: start: 20070519

REACTIONS (4)
  - APPLICATION SITE BURN [None]
  - APPLICATION SITE DISCHARGE [None]
  - APPLICATION SITE ERYTHEMA [None]
  - RASH [None]
